FAERS Safety Report 18265957 (Version 1)
Quarter: 2020Q3

REPORT INFORMATION
  Report Type: Spontaneous
  Country: US (occurrence: US)
  Receive Date: 20200915
  Receipt Date: 20200915
  Transmission Date: 20201103
  Serious: No
  Sender: FDA-Public Use
  Company Number: US-SA-2020SA247010

PATIENT

DRUGS (1)
  1. DUPIXENT [Suspect]
     Active Substance: DUPILUMAB
     Dosage: 300 MG, QOW
     Route: 058
     Dates: start: 202008

REACTIONS (5)
  - Skin exfoliation [Unknown]
  - Sleep disorder [Unknown]
  - Eczema [Unknown]
  - Pruritus [Unknown]
  - Dry skin [Unknown]

NARRATIVE: CASE EVENT DATE: 2020
